FAERS Safety Report 10037220 (Version 2)
Quarter: 2014Q2

REPORT INFORMATION
  Report Type: Spontaneous
  Country: CA (occurrence: CA)
  Receive Date: 20140326
  Receipt Date: 20140530
  Transmission Date: 20141212
  Serious: Yes (Hospitalization, Other)
  Sender: FDA-Public Use
  Company Number: CA-AMGEN-CANSP2014019895

PATIENT
  Age: 82 Year
  Sex: Female

DRUGS (1)
  1. PROLIA [Suspect]
     Indication: OSTEOPOROSIS
     Dosage: 60 MG, Q6MO
     Route: 058
     Dates: start: 20131002, end: 20131002

REACTIONS (7)
  - Angina pectoris [Recovered/Resolved]
  - Pain in jaw [Unknown]
  - Back pain [Unknown]
  - Adverse event [Unknown]
  - Neck pain [Unknown]
  - Musculoskeletal pain [Unknown]
  - Asthenia [Unknown]
